FAERS Safety Report 7370219-9 (Version None)
Quarter: 2011Q1

REPORT INFORMATION
  Report Type: 
  Country: None (occurrence: None)
  Receive Date: 20110323
  Receipt Date: 20100322
  Transmission Date: 20110831
  Serious: Yes (Hospitalization, Other)
  Sender: FDA-Public Use
  Company Number: US-ASTRAZENECA-2010SE12438

PATIENT
  Age: 18854 Day
  Sex: Female
  Weight: 134 kg

DRUGS (16)
  1. SOLU-MEDROL [Suspect]
     Indication: ANGIOEDEMA
     Route: 030
     Dates: start: 20100114, end: 20100116
  2. CP-690,550 [Suspect]
     Route: 048
     Dates: start: 20100216, end: 20100222
  3. TYLENOL (CAPLET) [Concomitant]
     Route: 048
     Dates: start: 20090708
  4. DARVOCET-N 100 [Concomitant]
     Route: 048
     Dates: start: 20070501
  5. PREDNISONE [Concomitant]
     Route: 048
     Dates: start: 20091129
  6. LISINOPRIL [Suspect]
     Indication: HYPERTENSION
     Route: 048
     Dates: start: 20100112, end: 20100115
  7. ARAVA [Concomitant]
     Route: 048
     Dates: start: 20090925
  8. CP-690,550 [Suspect]
     Indication: RHEUMATOID ARTHRITIS
     Route: 048
     Dates: start: 20100111, end: 20100115
  9. K-DUR [Concomitant]
     Route: 048
     Dates: start: 20100111
  10. PHENDIMETRAZINE FUMARATE [Concomitant]
     Indication: WEIGHT DECREASED
     Route: 048
     Dates: start: 20091130, end: 20100106
  11. CP-690,550 [Suspect]
     Route: 048
     Dates: start: 20100223, end: 20100301
  12. CP-690,550 [Suspect]
     Route: 048
     Dates: start: 20100302
  13. LASIX [Concomitant]
     Route: 048
     Dates: start: 20100111
  14. TOPIRAMATE [Concomitant]
     Indication: WEIGHT DECREASED
     Route: 048
     Dates: start: 20091130, end: 20100106
  15. VITAMIN D [Concomitant]
     Route: 048
     Dates: start: 20091001
  16. PEPCID [Concomitant]
     Route: 042
     Dates: start: 20100115

REACTIONS (2)
  - ANGIOEDEMA [None]
  - ANGINA PECTORIS [None]
